FAERS Safety Report 7986100-8 (Version None)
Quarter: 2011Q4

REPORT INFORMATION
  Report Type: 
  Country: None (occurrence: None)
  Receive Date: 20111216
  Receipt Date: 20110623
  Transmission Date: 20120403
  Serious: Yes (Other)
  Sender: FDA-Public Use
  Company Number: US-BRISTOL-MYERS SQUIBB COMPANY-15852817

PATIENT
  Age: 70 Year
  Sex: Male

DRUGS (3)
  1. FLURAZEPAM [Suspect]
  2. PROZAC [Suspect]
  3. ABILIFY [Suspect]
     Indication: MAJOR DEPRESSION

REACTIONS (1)
  - WEIGHT INCREASED [None]
